FAERS Safety Report 12629393 (Version 3)
Quarter: 2016Q3

REPORT INFORMATION
  Report Type: Spontaneous
  Country: US (occurrence: US)
  Receive Date: 20160808
  Receipt Date: 20160829
  Transmission Date: 20161109
  Serious: Yes (Other)
  Sender: FDA-Public Use
  Company Number: US-SA-2016SA120083

PATIENT
  Age: 52 Year
  Sex: Female
  Weight: 61.23 kg

DRUGS (1)
  1. ICY HOT MEDICATED, ADVANCED RELIEF [Suspect]
     Active Substance: MENTHOL
     Indication: ARTHRALGIA
     Route: 065
     Dates: start: 20160426, end: 20160426

REACTIONS (3)
  - Chemical injury [Not Recovered/Not Resolved]
  - Scar [Unknown]
  - Pain [Unknown]

NARRATIVE: CASE EVENT DATE: 20160427
